FAERS Safety Report 10745938 (Version 2)
Quarter: 2015Q1

REPORT INFORMATION
  Report Type: Spontaneous
  Country: US (occurrence: US)
  Receive Date: 20150128
  Receipt Date: 20150310
  Transmission Date: 20150721
  Serious: No
  Sender: FDA-Public Use
  Company Number: US-GLAXOSMITHKLINE-US2015GSK006544

PATIENT
  Sex: Female

DRUGS (3)
  1. TAFINLAR [Suspect]
     Active Substance: DABRAFENIB MESYLATE
     Indication: SKIN CANCER
  2. TAFINLAR [Suspect]
     Active Substance: DABRAFENIB MESYLATE
     Indication: MALIGNANT MELANOMA
     Dosage: UNK, U
     Route: 065
     Dates: start: 20140712
  3. MEKINIST [Suspect]
     Active Substance: TRAMETINIB DIMETHYL SULFOXIDE
     Indication: SKIN CANCER
     Dosage: UNK, U
     Route: 065
     Dates: start: 20140712

REACTIONS (4)
  - Vomiting [Not Recovered/Not Resolved]
  - Blood creatinine increased [Unknown]
  - Liver function test abnormal [Unknown]
  - Nausea [Not Recovered/Not Resolved]
